FAERS Safety Report 9928328 (Version 1)
Quarter: 2014Q1

REPORT INFORMATION
  Report Type: Spontaneous
  Country: US (occurrence: US)
  Receive Date: 20140227
  Receipt Date: 20140227
  Transmission Date: 20141002
  Serious: No
  Sender: FDA-Public Use
  Company Number: US-BAYER-2014-030620

PATIENT
  Age: 78 Year
  Sex: Female
  Weight: 99.77 kg

DRUGS (1)
  1. ALEVE CAPLET [Suspect]
     Dosage: 2-3 DF IN A DAY
     Route: 048
     Dates: start: 2013

REACTIONS (4)
  - Dyspepsia [Recovered/Resolved]
  - Throat irritation [Recovered/Resolved]
  - Chest pain [Recovered/Resolved]
  - Incorrect drug administration duration [None]
